FAERS Safety Report 6575722-7 (Version None)
Quarter: 2010Q1

REPORT INFORMATION
  Report Type: 
  Country: None (occurrence: None)
  Receive Date: 20100208
  Receipt Date: 20100208
  Transmission Date: 20100710
  Serious: No
  Sender: FDA-Public Use
  Company Number: None

PATIENT
  Sex: Female
  Weight: 95.709 kg

DRUGS (6)
  1. LEVAQUIN [Suspect]
     Indication: BRONCHITIS
     Dosage: 500 MG ONCE DAILY PO
     Route: 048
     Dates: start: 20100205, end: 20100206
  2. LEVAQUIN [Suspect]
     Indication: COUGH
     Dosage: 500 MG ONCE DAILY PO
     Route: 048
     Dates: start: 20100205, end: 20100206
  3. LEVAQUIN [Suspect]
     Indication: DYSPNOEA
     Dosage: 500 MG ONCE DAILY PO
     Route: 048
     Dates: start: 20100205, end: 20100206
  4. LEVAQUIN [Suspect]
     Indication: PNEUMONIA
     Dosage: 500 MG ONCE DAILY PO
     Route: 048
     Dates: start: 20100205, end: 20100206
  5. LEVAQUIN [Suspect]
     Indication: UNEVALUABLE EVENT
     Dosage: 500 MG ONCE DAILY PO
     Route: 048
     Dates: start: 20100205, end: 20100206
  6. LEVAQUIN [Suspect]
     Indication: WHEEZING
     Dosage: 500 MG ONCE DAILY PO
     Route: 048
     Dates: start: 20100205, end: 20100206

REACTIONS (4)
  - HEADACHE [None]
  - INITIAL INSOMNIA [None]
  - RASH [None]
  - VOMITING [None]
